FAERS Safety Report 19645419 (Version 2)
Quarter: 2021Q3

REPORT INFORMATION
  Report Type: Spontaneous
  Country: AU (occurrence: AU)
  Receive Date: 20210802
  Receipt Date: 20210804
  Transmission Date: 20211014
  Serious: Yes (Hospitalization, Other)
  Sender: FDA-Public Use
  Company Number: AU-B.I. PHARMACEUTICALS,INC./RIDGEFIELD-2021-BI-118840

PATIENT
  Age: 70 Year
  Sex: Female
  Weight: 50 kg

DRUGS (2)
  1. JARDIAMET [Suspect]
     Active Substance: EMPAGLIFLOZIN\METFORMIN HYDROCHLORIDE
     Indication: TYPE 2 DIABETES MELLITUS
     Dosage: UNIT DOSE 12.5MG/1000MG
     Dates: end: 20210726
  2. DIAMICRON MR [Concomitant]
     Active Substance: GLICLAZIDE
     Dosage: TAKEN IN THE MORNING, CEASED UPON ADMISSION TO HOSPITAL AND RESTARTED BEFORE DISCHARGE
     Dates: end: 202107

REACTIONS (5)
  - Euglycaemic diabetic ketoacidosis [Recovered/Resolved]
  - Gastritis [Recovered/Resolved]
  - Cholelithiasis [Unknown]
  - Euglycaemic diabetic ketoacidosis [Recovered/Resolved with Sequelae]
  - Viral infection [Recovered/Resolved with Sequelae]

NARRATIVE: CASE EVENT DATE: 202107
